FAERS Safety Report 7391521-0 (Version None)
Quarter: 2011Q2

REPORT INFORMATION
  Report Type: 
  Country: None (occurrence: None)
  Receive Date: 20110404
  Receipt Date: 20110324
  Transmission Date: 20111010
  Serious: Yes (Hospitalization)
  Sender: FDA-Public Use
  Company Number: JP-JNJFOC-20110204570

PATIENT
  Sex: Male
  Weight: 88 kg

DRUGS (9)
  1. LONGES [Concomitant]
     Indication: HYPERTENSION
     Route: 048
  2. RHEUMATREX [Suspect]
     Indication: RHEUMATOID ARTHRITIS
     Route: 048
  3. AMLODIPINE [Concomitant]
     Indication: HYPERTENSION
     Route: 048
  4. AZULFIDINE [Concomitant]
     Indication: RHEUMATOID ARTHRITIS
     Route: 048
  5. GOLIMUMAB [Suspect]
     Indication: RHEUMATOID ARTHRITIS
     Route: 058
  6. GOLIMUMAB [Suspect]
     Route: 058
  7. PREDNISOLONE [Suspect]
     Indication: RHEUMATOID ARTHRITIS
     Route: 048
  8. SELTOUCH [Concomitant]
     Indication: RHEUMATOID ARTHRITIS
     Route: 062
  9. GASTER D [Concomitant]
     Indication: REFLUX OESOPHAGITIS
     Route: 048

REACTIONS (1)
  - TESTICULAR NEOPLASM [None]
